FAERS Safety Report 5265987-6 (Version None)
Quarter: 2007Q1

REPORT INFORMATION
  Report Type: 
  Country: None (occurrence: None)
  Receive Date: 20070315
  Receipt Date: 20070312
  Transmission Date: 20070707
  Serious: Yes (Disabling, Other)
  Sender: FDA-Public Use
  Company Number: GB-BAYER-200710263BNE

PATIENT
  Age: 56 Year
  Sex: Female
  Weight: 57 kg

DRUGS (3)
  1. CIPROFLOXACIN HYDROCHLORIDE [Suspect]
     Indication: URINARY TRACT INFECTION
     Dosage: UNIT DOSE: 250 MG
     Route: 048
  2. PREDISOLONE [Concomitant]
     Indication: POLYMYALGIA RHEUMATICA
     Route: 048
  3. BRUFEN RETARD [Concomitant]
     Route: 048

REACTIONS (3)
  - MUSCLE INJURY [None]
  - MUSCULOSKELETAL PAIN [None]
  - TENDON RUPTURE [None]
